FAERS Safety Report 7733936-4 (Version None)
Quarter: 2011Q3

REPORT INFORMATION
  Report Type: 
  Country: None (occurrence: None)
  Receive Date: 20110906
  Receipt Date: 20110906
  Transmission Date: 20111222
  Serious: Yes (Hospitalization)
  Sender: FDA-Public Use
  Company Number: None

PATIENT
  Sex: Male
  Weight: 102.27 kg

DRUGS (4)
  1. BEVACIZUMAB (RHUMAB VEGF) [Suspect]
     Dosage: 1500 MG
     Dates: end: 20110812
  2. IRINOTECAN HCL [Suspect]
     Dosage: 1215 MG
     Dates: end: 20110812
  3. FLUOROURACIL [Suspect]
     Dosage: 18900 MG
     Dates: end: 20110812
  4. LEUCOVORIN CALCIUM [Suspect]
     Dosage: 2700 MG
     Dates: end: 20110812

REACTIONS (8)
  - FAECAL VOLUME INCREASED [None]
  - TOXICITY TO VARIOUS AGENTS [None]
  - HYPOTENSION [None]
  - VOMITING [None]
  - BLOOD URIC ACID INCREASED [None]
  - NAUSEA [None]
  - DEHYDRATION [None]
  - RENAL FAILURE ACUTE [None]
